FAERS Safety Report 18453414 (Version 3)
Quarter: 2021Q3

REPORT INFORMATION
  Report Type: Spontaneous
  Country: US (occurrence: US)
  Receive Date: 20201102
  Receipt Date: 20210901
  Transmission Date: 20211014
  Serious: No
  Sender: FDA-Public Use
  Company Number: US-MYLANLABS-2020M1088734

PATIENT
  Age: 75 Year
  Sex: Male
  Weight: 78.3 kg

DRUGS (1)
  1. EPIPEN [Suspect]
     Active Substance: EPINEPHRINE
     Indication: ANGIOEDEMA
     Dosage: UNK
     Route: 030
     Dates: start: 20201016, end: 20201016

REACTIONS (2)
  - Product quality issue [Unknown]
  - Needle issue [Unknown]

NARRATIVE: CASE EVENT DATE: 20201016
